FAERS Safety Report 24856284 (Version 1)
Quarter: 2025Q1

REPORT INFORMATION
  Report Type: Report from Study
  Country: US (occurrence: US)
  Receive Date: 20250117
  Receipt Date: 20250117
  Transmission Date: 20250409
  Serious: Yes (Other)
  Sender: ABBVIE
  Company Number: US-ABBVIE-6084406

PATIENT
  Age: 42 Year
  Sex: Female

DRUGS (1)
  1. HUMIRA [Suspect]
     Active Substance: ADALIMUMAB
     Indication: Psoriasis
     Route: 058
     Dates: start: 20241026

REACTIONS (6)
  - Knee operation [Recovering/Resolving]
  - Postoperative wound infection [Recovering/Resolving]
  - Seizure [Recovered/Resolved]
  - Nail psoriasis [Not Recovered/Not Resolved]
  - Sepsis [Recovering/Resolving]
  - Psoriasis [Not Recovered/Not Resolved]

NARRATIVE: CASE EVENT DATE: 20241201
